FAERS Safety Report 4342137-1 (Version None)
Quarter: 2004Q2

REPORT INFORMATION
  Report Type: 
  Country: None (occurrence: None)
  Receive Date: 20040409
  Receipt Date: 20031014
  Transmission Date: 20050107
  Serious: Yes (Death)
  Sender: FDA-Public Use
  Company Number: 03P-163-0237507-00

PATIENT
  Age: 44 Year
  Sex: Male

DRUGS (4)
  1. DEPAKOTE [Suspect]
     Dosage: 1500 MG
  2. CLOZAPINE [Suspect]
     Indication: SCHIZOPHRENIA
     Dosage: 400 MG, PER ORAL
     Route: 048
     Dates: start: 20021101, end: 20030801
  3. RISPERIDONE [Suspect]
     Dosage: 4 MG, 2 IN 1 D
  4. QUETIAPINE [Suspect]
     Dosage: 800 MG, 1 IN 1 D

REACTIONS (1)
  - DEATH [None]
